FAERS Safety Report 8774589 (Version 6)
Quarter: 2014Q2

REPORT INFORMATION
  Report Type: Spontaneous
  Country: US (occurrence: US)
  Receive Date: 20120907
  Receipt Date: 20140505
  Transmission Date: 20141212
  Serious: Yes (Hospitalization, Other)
  Sender: FDA-Public Use
  Company Number: US-009507513-1201USA01965

PATIENT
  Sex: Male
  Weight: 81.19 kg

DRUGS (10)
  1. FOSAMAX [Suspect]
     Indication: OSTEOPENIA
     Dosage: 70 MG, QW
     Route: 048
     Dates: start: 2000, end: 2008
  2. MK-9278 [Concomitant]
     Dates: start: 1990, end: 2008
  3. CALCIUM (UNSPECIFIED) [Concomitant]
     Indication: OSTEOPOROSIS
  4. CALCIUM (UNSPECIFIED) [Concomitant]
     Indication: OSTEOARTHRITIS
  5. EFFEXOR XR [Concomitant]
     Indication: BIPOLAR DISORDER
  6. SEROQUEL [Concomitant]
     Indication: BIPOLAR DISORDER
  7. ABACAVIR SULFATE [Concomitant]
     Indication: HIV TEST POSITIVE
  8. LAMIVUDINE [Concomitant]
     Indication: HIV TEST POSITIVE
  9. NORVIR [Concomitant]
     Indication: HIV TEST POSITIVE
  10. VIREAD [Concomitant]
     Indication: HIV TEST POSITIVE

REACTIONS (79)
  - Foot fracture [Unknown]
  - Open reduction of fracture [Unknown]
  - Intramedullary rod insertion [Unknown]
  - Hypertension [Unknown]
  - Acidosis [Recovered/Resolved]
  - Cardiac disorder [Unknown]
  - Cholecystitis [Unknown]
  - Pancreatitis chronic [Not Recovered/Not Resolved]
  - Renal failure acute [Unknown]
  - Biliary dyskinesia [Unknown]
  - Renal impairment [Unknown]
  - Anaemia postoperative [Recovered/Resolved]
  - Mental disorder [Unknown]
  - Cholecystectomy [Unknown]
  - Aplastic anaemia [Unknown]
  - Renal failure chronic [Not Recovered/Not Resolved]
  - Coagulopathy [Recovered/Resolved]
  - Suicide attempt [Unknown]
  - Postoperative fever [Recovered/Resolved]
  - Glomerulonephritis [Unknown]
  - Aphasia [Unknown]
  - Hypokalaemia [Recovering/Resolving]
  - Mental status changes [Unknown]
  - Convulsion [Unknown]
  - Hyponatraemia [Unknown]
  - Femur fracture [Recovered/Resolved]
  - Pancreatic disorder [Unknown]
  - Overdose [Unknown]
  - Blood cholesterol increased [Unknown]
  - Dyspnoea [Unknown]
  - Arthritis [Unknown]
  - Pulmonary calcification [Unknown]
  - Lymph node calcification [Unknown]
  - Chest pain [Unknown]
  - Cardiomegaly [Unknown]
  - Hypertriglyceridaemia [Unknown]
  - Androgen deficiency [Unknown]
  - Lipodystrophy acquired [Unknown]
  - Arthritis [Unknown]
  - Bursitis [Unknown]
  - Fall [Unknown]
  - Hernia repair [Unknown]
  - Nasal septum deviation [Unknown]
  - Tachycardia [Unknown]
  - Cardiomyopathy [Unknown]
  - Myopia [Unknown]
  - Urinary retention [Unknown]
  - Ecchymosis [Unknown]
  - Restlessness [Unknown]
  - Delirium [Recovering/Resolving]
  - Tubulointerstitial nephritis [Unknown]
  - Cerebral atrophy [Unknown]
  - Nephrolithiasis [Unknown]
  - Hepatobiliary scan abnormal [Unknown]
  - Sensory disturbance [Unknown]
  - Hypokalaemia [Recovered/Resolved]
  - Vitamin D decreased [Unknown]
  - Sinus tachycardia [Unknown]
  - Aortic arteriosclerosis [Unknown]
  - Left ventricular failure [Unknown]
  - Breast mass [Unknown]
  - Splenic calcification [Unknown]
  - Urinary tract infection [Unknown]
  - Anaemia of chronic disease [Unknown]
  - Pancreatic steatosis [Unknown]
  - Bursitis [Unknown]
  - Fracture delayed union [Unknown]
  - Fracture nonunion [Unknown]
  - Bursitis [Unknown]
  - Hypertension [Unknown]
  - Faeces soft [Unknown]
  - Sleep apnoea syndrome [Unknown]
  - Erectile dysfunction [Unknown]
  - Prostatic disorder [Unknown]
  - Hypoglycaemia [Unknown]
  - Gastritis [Unknown]
  - Gastritis [Unknown]
  - Gastrooesophageal reflux disease [Unknown]
  - Constipation [Recovered/Resolved]
